FAERS Safety Report 7806394-9 (Version None)
Quarter: 2011Q4

REPORT INFORMATION
  Report Type: 
  Country: None (occurrence: None)
  Receive Date: 20111011
  Receipt Date: 20111004
  Transmission Date: 20120403
  Serious: Yes (Other)
  Sender: FDA-Public Use
  Company Number: GB-PFIZER INC-2011163357

PATIENT
  Age: 53 Year
  Sex: Male

DRUGS (2)
  1. PREGABALIN [Suspect]
     Indication: EPILEPSY
     Dosage: 200 MG, 3X/DAY
     Route: 048
  2. PREGABALIN [Suspect]
     Dosage: 150 MG, 3X/DAY
     Route: 048

REACTIONS (2)
  - CONVULSION [None]
  - ARTHRALGIA [None]
